FAERS Safety Report 6163394-5 (Version None)
Quarter: 2009Q2

REPORT INFORMATION
  Report Type: 
  Country: None (occurrence: None)
  Receive Date: 20090422
  Receipt Date: 20090414
  Transmission Date: 20091009
  Serious: Yes (Other)
  Sender: FDA-Public Use
  Company Number: PHHY2009BR14440

PATIENT
  Sex: Female
  Weight: 51 kg

DRUGS (7)
  1. EXELON [Suspect]
     Indication: DEMENTIA ALZHEIMER'S TYPE
     Dosage: 3 MG, BID
     Route: 048
     Dates: start: 20040101
  2. EXELON [Suspect]
     Dosage: 4.5 MG, BID
     Route: 048
     Dates: start: 20050101
  3. EXELON [Suspect]
     Dosage: 6 MG, BID
     Route: 048
  4. EXELON [Suspect]
     Dosage: 1 CAPSULE OF 3 MG IN THE MORNING AND 1 CAPSULE OF 4.5 MG AT NIGHT
     Route: 048
  5. CALCIUM CARBONATE W/COLECALCIFEROL [Concomitant]
     Indication: BONE DISORDER
     Dosage: UNK
     Route: 048
  6. LESCOL XL [Concomitant]
     Indication: BLOOD CHOLESTEROL
     Dosage: 80 MG, QD
     Route: 048
  7. MODURETIC 5-50 [Concomitant]
     Indication: HYPERTENSION
     Dosage: 50 MG, QD
     Route: 048

REACTIONS (8)
  - ARTHRALGIA [None]
  - CHONDROPATHY [None]
  - DIZZINESS [None]
  - EXOSTOSIS [None]
  - OSTEOARTHRITIS [None]
  - OSTEOSCLEROSIS [None]
  - SYNCOPE [None]
  - VOMITING [None]
